FAERS Safety Report 4286616-4 (Version None)
Quarter: 2004Q1

REPORT INFORMATION
  Report Type: 
  Country: None (occurrence: None)
  Receive Date: 20040206
  Receipt Date: 20040127
  Transmission Date: 20041129
  Serious: Yes (Other)
  Sender: FDA-Public Use
  Company Number: PHBS2004NL01392

PATIENT

DRUGS (1)
  1. EXELON [Suspect]
     Indication: DELIRIUM
     Route: 048

REACTIONS (1)
  - CIRCULATORY COLLAPSE [None]
